FAERS Safety Report 10221739 (Version 1)
Quarter: 2014Q2

REPORT INFORMATION
  Report Type: Spontaneous
  Country: HR (occurrence: HR)
  Receive Date: 20140606
  Receipt Date: 20140606
  Transmission Date: 20141212
  Serious: Yes (Death, Hospitalization)
  Sender: FDA-Public Use
  Company Number: HR-BAYER-2014-078939

PATIENT
  Age: 86 Year
  Sex: Female

DRUGS (2)
  1. ACETYLSALICYLIC ACID (} 100 MG) [Suspect]
  2. PRADAXA [Interacting]
     Route: 048

REACTIONS (3)
  - Haemorrhagic diathesis [Fatal]
  - Large intestinal haemorrhage [Fatal]
  - Labelled drug-disease interaction medication error [Fatal]
